FAERS Safety Report 17873637 (Version 5)
Quarter: 2021Q3

REPORT INFORMATION
  Report Type: Other
  Country: CA (occurrence: CA)
  Receive Date: 20200609
  Receipt Date: 20210809
  Transmission Date: 20211014
  Serious: Yes (Other)
  Sender: FDA-Public Use
  Company Number: CA-APOTEX-2020AP011480

PATIENT
  Sex: Female

DRUGS (35)
  1. CLOZAPINE. [Interacting]
     Active Substance: CLOZAPINE
     Indication: PRODUCT USED FOR UNKNOWN INDICATION
     Dosage: 1 DF, QD
     Route: 065
  2. CHOLECALCIFEROL [Suspect]
     Active Substance: CHOLECALCIFEROL
     Indication: PRODUCT USED FOR UNKNOWN INDICATION
     Dosage: UNK
     Route: 065
  3. APO?RANITIDINE [Interacting]
     Active Substance: RANITIDINE
     Dosage: 1 DF, BID
     Route: 065
  4. OLANZAPINE. [Interacting]
     Active Substance: OLANZAPINE
     Indication: MOOD ALTERED
     Dosage: 1 DF, BID
     Route: 065
  5. ACETAMINOPHEN/CAFFEINE [Suspect]
     Active Substance: ACETAMINOPHEN\CAFFEINE
     Indication: PYREXIA
     Dosage: 2 DOSAGE FORM
     Route: 065
  6. REXULTI [Interacting]
     Active Substance: BREXPIPRAZOLE
     Indication: PRODUCT USED FOR UNKNOWN INDICATION
     Dosage: UNK
     Route: 065
  7. VALPROATE SEMISODIUM [Interacting]
     Active Substance: DIVALPROEX SODIUM
     Indication: PRODUCT USED FOR UNKNOWN INDICATION
     Dosage: 1 DF, BID
     Route: 065
  8. VITAMIN D3 [Interacting]
     Active Substance: CHOLECALCIFEROL
     Indication: PRODUCT USED FOR UNKNOWN INDICATION
     Dosage: 1 DF, UNK
     Route: 065
  9. APO?RANITIDINE [Interacting]
     Active Substance: RANITIDINE
     Indication: PRODUCT USED FOR UNKNOWN INDICATION
     Dosage: 1 DF, BID
     Route: 065
  10. ARIPIPRAZOLE. [Interacting]
     Active Substance: ARIPIPRAZOLE
     Indication: PRODUCT USED FOR UNKNOWN INDICATION
     Dosage: UNK
     Route: 065
  11. ZOPICLONE [Interacting]
     Active Substance: ZOPICLONE
     Indication: INSOMNIA
     Dosage: UNK UNK, QD
     Route: 065
  12. VALPROATE SEMISODIUM [Interacting]
     Active Substance: DIVALPROEX SODIUM
     Dosage: UNK
     Route: 065
  13. CONJUGATED ESTROGENS [Suspect]
     Active Substance: ESTROGENS, CONJUGATED
     Indication: PRODUCT USED FOR UNKNOWN INDICATION
     Dosage: UNK
     Route: 061
  14. ACETAMINOPHEN. [Interacting]
     Active Substance: ACETAMINOPHEN
     Indication: PYREXIA
     Dosage: 2 DF, UNK
     Route: 065
  15. ACETAMINOPHEN. [Interacting]
     Active Substance: ACETAMINOPHEN
     Indication: PAIN
     Dosage: UNK
     Route: 065
  16. ACETAMINOPHEN/CAFFEINE [Suspect]
     Active Substance: ACETAMINOPHEN\CAFFEINE
     Indication: PAIN
     Dosage: UNK
     Route: 065
  17. MINT ZOPICLONE [Interacting]
     Active Substance: ZOPICLONE
     Indication: INSOMNIA
     Dosage: 1 DF, QD
     Route: 065
  18. FLUMIST QUADRIVALENT [Suspect]
     Active Substance: INFLUENZA A VIRUS A/CALIFORNIA/7/2009 (H1N1) LIVE(ATTENUATED) ANTIGEN\INFLUENZA A VIRUS A/TEXAS/50/2012 (H3N2) LIVE (ATTENUATED) ANTIGEN\INFLUENZA B VIRUS B/BRISBANE/60/2008 LIVE(ATTENUATED) ANTIGEN\INFLUENZA B VIRUS B/MASSACHUSETTS/2/2012 LIVE (ATTENUATED) ANTIGEN
     Indication: PRODUCT USED FOR UNKNOWN INDICATION
     Dosage: UNK
     Route: 065
  19. CLOZAPINE. [Interacting]
     Active Substance: CLOZAPINE
     Dosage: 3 DF, QD
     Route: 065
  20. DIVALPROEX [Interacting]
     Active Substance: DIVALPROEX SODIUM
     Indication: PRODUCT USED FOR UNKNOWN INDICATION
     Dosage: UNK, BID
     Route: 065
  21. ALUMINIUM AND MAGNESIUM [Interacting]
     Active Substance: ALUMINUM HYDROXIDE\MAGNESIUM HYDROXIDE
     Indication: ABDOMINAL DISCOMFORT
     Dosage: 30 ML, UNK
     Route: 048
  22. CLOTRIMAZOLE. [Interacting]
     Active Substance: CLOTRIMAZOLE
     Indication: RASH
     Dosage: 1 DOSAGE FORM, BID
     Route: 065
  23. ESTRADIOL. [Interacting]
     Active Substance: ESTRADIOL
     Indication: PRODUCT USED FOR UNKNOWN INDICATION
     Dosage: 1 UNK, UNK
     Route: 067
  24. ALMAGEL [ALUMINIUM HYDROXIDE;MAGNESIUM HYDROXIDE] [Interacting]
     Active Substance: ALUMINUM HYDROXIDE\MAGNESIUM HYDROXIDE
     Indication: PRODUCT USED FOR UNKNOWN INDICATION
     Dosage: UNK
     Route: 048
  25. INFLUENZA VACCINES [Suspect]
     Active Substance: INFLUENZA VIRUS VACCINE
     Indication: PRODUCT USED FOR UNKNOWN INDICATION
     Dosage: UNK
     Route: 065
  26. AMLODIPINE [Suspect]
     Active Substance: AMLODIPINE BESYLATE
     Indication: PRODUCT USED FOR UNKNOWN INDICATION
     Dosage: 1 DF, QD
     Route: 065
  27. PREMARIN [Interacting]
     Active Substance: ESTROGENS, CONJUGATED
     Indication: PRODUCT USED FOR UNKNOWN INDICATION
     Dosage: 0.5 G, UNK
     Route: 061
  28. OLANZAPINE. [Interacting]
     Active Substance: OLANZAPINE
     Dosage: UNK UNK, QD
     Route: 065
  29. CLOTRIMAZOLE. [Interacting]
     Active Substance: CLOTRIMAZOLE
     Dosage: UNK UNK, BID
     Route: 065
  30. FLUVIRAL [Interacting]
     Active Substance: INFLUENZA VIRUS VACCINE
     Indication: PROPHYLAXIS
     Dosage: UNK
     Route: 065
  31. LEVOTHYROXINE SODIUM. [Interacting]
     Active Substance: LEVOTHYROXINE SODIUM
     Indication: PRODUCT USED FOR UNKNOWN INDICATION
     Dosage: 1 DF, UNK
     Route: 065
  32. DEPAKOTE [Interacting]
     Active Substance: DIVALPROEX SODIUM
     Indication: PRODUCT USED FOR UNKNOWN INDICATION
     Dosage: UNK
     Route: 065
  33. MAALOX [CALCIUM CARBONATE] [Interacting]
     Active Substance: CALCIUM CARBONATE
     Indication: ABDOMINAL DISCOMFORT
     Dosage: 30.0 MILLIGRAM/MILLILITER
     Route: 065
  34. ALUMINUM HYDROXIDE [ALUMINIUM HYDROXIDE] [Suspect]
     Active Substance: ALUMINUM HYDROXIDE
     Indication: ABDOMINAL DISCOMFORT
     Dosage: 30 MILLILITER
     Route: 048
  35. PREMARIN [Interacting]
     Active Substance: ESTROGENS, CONJUGATED
     Dosage: 5 GRAM
     Route: 065

REACTIONS (5)
  - Drug level increased [Unknown]
  - Electrocardiogram QT prolonged [Unknown]
  - Sinus rhythm [Unknown]
  - Drug interaction [Unknown]
  - Schizoaffective disorder [Unknown]
